FAERS Safety Report 10136842 (Version 1)
Quarter: 2014Q2

REPORT INFORMATION
  Report Type: Spontaneous
  Country: US (occurrence: None)
  Receive Date: 20140428
  Receipt Date: 20140428
  Transmission Date: 20141212
  Serious: Yes (Life-Threatening, Other)
  Sender: FDA-Public Use
  Company Number: None

PATIENT
  Age: 46 Year
  Sex: Male
  Weight: 95.26 kg

DRUGS (3)
  1. TIVICAY [Suspect]
     Indication: HIV INFECTION
     Route: 048
     Dates: start: 20140326, end: 20140327
  2. ABACAVIR [Concomitant]
  3. OXYCODONE [Concomitant]

REACTIONS (3)
  - Depression [None]
  - Suicidal ideation [None]
  - Abnormal behaviour [None]
